FAERS Safety Report 10201507 (Version 2)
Quarter: 2015Q1

REPORT INFORMATION
  Report Type: Spontaneous
  Country: US (occurrence: US)
  Receive Date: 20140528
  Receipt Date: 20150304
  Transmission Date: 20150720
  Serious: Yes (Congenital Anomaly, Other)
  Sender: FDA-Public Use
  Company Number: US-ELI_LILLY_AND_COMPANY-US201405006832

PATIENT
  Sex: Female

DRUGS (2)
  1. PROZAC [Suspect]
     Active Substance: FLUOXETINE HYDROCHLORIDE
     Indication: PRODUCT USED FOR UNKNOWN INDICATION
     Dosage: 20 MG, UNKNOWN
     Route: 064
  2. PAXIL [Concomitant]
     Active Substance: PAROXETINE HYDROCHLORIDE
     Dosage: 10 MG, UNKNOWN
     Route: 064

REACTIONS (6)
  - Exposure during breast feeding [Unknown]
  - Haemangioma congenital [Unknown]
  - Meningocele [Unknown]
  - Foetal exposure during pregnancy [Recovered/Resolved]
  - Encephalocele [Unknown]
  - Foetal growth restriction [Unknown]
